FAERS Safety Report 24412069 (Version 2)
Quarter: 2024Q4

REPORT INFORMATION
  Report Type: Spontaneous
  Country: CN (occurrence: CN)
  Receive Date: 20241008
  Receipt Date: 20241024
  Transmission Date: 20250114
  Serious: Yes (Hospitalization)
  Sender: Vantive US Healthcare
  Company Number: CN-VANTIVE-2024VAN020190

PATIENT
  Age: 41 Year
  Sex: Female

DRUGS (1)
  1. DIANEAL [Suspect]
     Active Substance: CALCIUM CHLORIDE\DEXTROSE\MAGNESIUM CHLORIDE\SODIUM CHLORIDE\SODIUM LACTATE
     Indication: Peritoneal dialysis
     Dosage: UNK
     Route: 033

REACTIONS (3)
  - Hypertension [Not Recovered/Not Resolved]
  - Procedural hypertension [Not Recovered/Not Resolved]
  - Procedural headache [Not Recovered/Not Resolved]

NARRATIVE: CASE EVENT DATE: 20240930
